FAERS Safety Report 8497568-5 (Version None)
Quarter: 2012Q3

REPORT INFORMATION
  Report Type: 
  Country: None (occurrence: None)
  Receive Date: 20120709
  Receipt Date: 20120614
  Transmission Date: 20120928
  Serious: No
  Sender: FDA-Public Use
  Company Number: US-AMGEN-USASP2012037148

PATIENT
  Age: 43 Year
  Sex: Male

DRUGS (6)
  1. GLUCOSAMINE CHONDROITIN            /01430901/ [Concomitant]
  2. VITAMIN C                          /00008001/ [Concomitant]
  3. ENBREL [Suspect]
     Indication: ANKYLOSING SPONDYLITIS
     Dosage: 50 MG, QWK
     Dates: start: 20120401
  4. AMLODIPINE [Concomitant]
  5. LOSARTAN POTASSIUM [Concomitant]
  6. NEXIUM [Concomitant]

REACTIONS (2)
  - INJECTION SITE ERYTHEMA [None]
  - INJECTION SITE RASH [None]
